FAERS Safety Report 24728553 (Version 3)
Quarter: 2025Q2

REPORT INFORMATION
  Report Type: Spontaneous
  Country: US (occurrence: US)
  Receive Date: 20241212
  Receipt Date: 20250401
  Transmission Date: 20250716
  Serious: Yes (Other)
  Sender: PFIZER
  Company Number: US-PFIZER INC-PV202400161929

PATIENT
  Age: 63 Year
  Sex: Female

DRUGS (1)
  1. NURTEC ODT [Suspect]
     Active Substance: RIMEGEPANT SULFATE
     Route: 048

REACTIONS (6)
  - Dementia [Unknown]
  - Vertigo [Unknown]
  - Dizziness [Unknown]
  - Amnesia [Unknown]
  - Product quality issue [Unknown]
  - Poor quality product administered [Unknown]
